FAERS Safety Report 6505641-3 (Version None)
Quarter: 2009Q4

REPORT INFORMATION
  Report Type: 
  Country: None (occurrence: None)
  Receive Date: 20091218
  Receipt Date: 20091209
  Transmission Date: 20100525
  Serious: Yes (Hospitalization)
  Sender: FDA-Public Use
  Company Number: GXKR2009IN13295

PATIENT
  Age: 3 Month
  Sex: Male
  Weight: 5 kg

DRUGS (7)
  1. CLONIDINE (NGX) [Suspect]
     Dosage: 5 UG, UNK
     Route: 037
  2. PROPOFOL [Concomitant]
     Indication: SEDATION
     Dosage: 10 MG BOLUS, ONCE/SINGLE
     Route: 065
  3. PROPOFOL [Concomitant]
     Dosage: 25 UG/KG/MIN
  4. BUPIVACAINE [Concomitant]
     Dosage: 2.5 MG, UNK
     Route: 037
  5. THIOPENTAL SODIUM [Concomitant]
     Route: 042
  6. SEVOFLURANE [Concomitant]
  7. NITROUS OXIDE [Concomitant]

REACTIONS (9)
  - APNOEA [None]
  - ENDOTRACHEAL INTUBATION [None]
  - HYPOKINESIA [None]
  - HYPOTONIA [None]
  - LETHARGY [None]
  - MECHANICAL VENTILATION [None]
  - RESPIRATORY DEPRESSION [None]
  - RESPIRATORY FAILURE [None]
  - SEDATION [None]
